FAERS Safety Report 8473383 (Version 3)
Quarter: 2014Q1

REPORT INFORMATION
  Report Type: Spontaneous
  Country: US (occurrence: US)
  Receive Date: 20120323
  Receipt Date: 20140122
  Transmission Date: 20141002
  Serious: No
  Sender: FDA-Public Use
  Company Number: US-JNJFOC-20120307719

PATIENT
  Sex: Female
  Weight: 63.5 kg

DRUGS (13)
  1. FENTANYL [Suspect]
     Indication: RENAL DISORDER
     Route: 062
  2. FENTANYL [Suspect]
     Indication: RENAL DISORDER
     Route: 062
  3. FENTANYL [Suspect]
     Indication: RENAL DISORDER
     Route: 062
  4. FENTANYL [Suspect]
     Indication: ARTHRITIS
     Route: 062
  5. FENTANYL [Suspect]
     Indication: ARTHRITIS
     Route: 062
  6. FENTANYL [Suspect]
     Indication: ARTHRITIS
     Route: 062
  7. ULORIC [Interacting]
     Indication: PRODUCT USED FOR UNKNOWN INDICATION
     Route: 065
     Dates: end: 2011
  8. NEXIUM [Concomitant]
     Indication: FLATULENCE
     Route: 048
     Dates: start: 2007
  9. NORVASC [Concomitant]
     Indication: HYPERTENSION
     Route: 048
     Dates: start: 2007
  10. TRAMADOL ER [Concomitant]
     Indication: BREAKTHROUGH PAIN
     Route: 048
  11. DITROPAN [Concomitant]
     Indication: NOCTURIA
     Route: 048
     Dates: start: 2006
  12. UNKNOWN MEDICATION [Concomitant]
     Indication: RENAL DISORDER
     Route: 048
  13. ALLOPURINOL [Concomitant]
     Indication: RENAL DISORDER
     Route: 048
     Dates: start: 2011

REACTIONS (9)
  - Drug interaction [Recovered/Resolved]
  - Product container issue [Unknown]
  - Vitamin D deficiency [Not Recovered/Not Resolved]
  - Fatigue [Recovered/Resolved]
  - Chest pain [Recovered/Resolved]
  - Poor quality drug administered [Not Recovered/Not Resolved]
  - Inadequate analgesia [Recovered/Resolved]
  - Therapeutic response decreased [Not Recovered/Not Resolved]
  - Product quality issue [Unknown]
